FAERS Safety Report 9989446 (Version 1)
Quarter: 2014Q1

REPORT INFORMATION
  Report Type: Report from Study
  Country: US (occurrence: US)
  Receive Date: 20140310
  Receipt Date: 20140310
  Transmission Date: 20141002
  Serious: No
  Sender: FDA-Public Use
  Company Number: US-ABBVIE-13P-163-1129799-00

PATIENT
  Age: 51 Year
  Sex: Male

DRUGS (11)
  1. HUMIRA [Suspect]
     Indication: HIDRADENITIS
     Dates: start: 201303
  2. EQUATE ACID REDUCER [Concomitant]
     Indication: GASTROOESOPHAGEAL REFLUX DISEASE
  3. PROAIR [Concomitant]
     Indication: ASTHMA
     Dosage: 2 SPRAYS 4 TIMES A DAY
  4. GLYBURIDE/METFORMIN [Concomitant]
     Indication: DIABETES MELLITUS
     Dosage: 2.5/500MG
  5. LISINOPRIL [Concomitant]
     Indication: PRODUCT USED FOR UNKNOWN INDICATION
  6. FLOMAX [Concomitant]
     Indication: BENIGN PROSTATIC HYPERPLASIA
  7. DICYCLOMINE [Concomitant]
     Indication: GASTRIC DISORDER
     Dosage: AT BEDTIME
  8. PAXIL [Concomitant]
     Indication: SOCIAL PHOBIA
  9. PAXIL [Concomitant]
     Indication: DEPRESSION
  10. PRAVASTATIN [Concomitant]
     Indication: BLOOD CHOLESTEROL INCREASED
  11. ACETAMINOPHEN PM [Concomitant]
     Indication: INSOMNIA
     Dosage: AT BED TIME

REACTIONS (1)
  - Lymphocyte count decreased [Not Recovered/Not Resolved]
